FAERS Safety Report 6936957-4 (Version None)
Quarter: 2010Q3

REPORT INFORMATION
  Report Type: 
  Country: None (occurrence: None)
  Receive Date: 20100818
  Receipt Date: 20100805
  Transmission Date: 20110219
  Serious: Yes (Hospitalization, Other)
  Sender: FDA-Public Use
  Company Number: CL-195-2010

PATIENT
  Age: 11 Year
  Sex: Female

DRUGS (2)
  1. ONDANSETRON [Suspect]
     Dosage: 0.1 RNG.KG(-1) ONCE IV
     Route: 042
  2. DIMENHYDRINATE [Suspect]
     Dosage: 0.4 MG. KG (-1 ONCE IV
     Route: 042

REACTIONS (4)
  - DRUG INTERACTION [None]
  - ELECTROCARDIOGRAM QT PROLONGED [None]
  - VENTRICULAR EXTRASYSTOLES [None]
  - VENTRICULAR TACHYCARDIA [None]
